FAERS Safety Report 6026953-6 (Version None)
Quarter: 2009Q1

REPORT INFORMATION
  Report Type: 
  Country: None (occurrence: None)
  Receive Date: 20090105
  Receipt Date: 20081224
  Transmission Date: 20090719
  Serious: Yes (Other)
  Sender: FDA-Public Use
  Company Number: PHHY2008FR32672

PATIENT
  Sex: Female

DRUGS (7)
  1. EXELON [Suspect]
     Indication: DEMENTIA
     Dosage: 4.6 MG/24 HOUR
     Route: 062
     Dates: start: 20081201, end: 20081206
  2. EXELON [Suspect]
     Indication: DEMENTIA ALZHEIMER'S TYPE
  3. KARDEGIC [Concomitant]
     Dosage: 75 MG DAILY
  4. LEVOTHYROX [Concomitant]
  5. ESCITALOPRAM [Concomitant]
  6. SOTALOL [Concomitant]
  7. ALPRAZOLAM [Concomitant]

REACTIONS (1)
  - ECZEMA [None]
